FAERS Safety Report 17735771 (Version 9)
Quarter: 2024Q2

REPORT INFORMATION
  Report Type: Spontaneous
  Country: CA (occurrence: CA)
  Receive Date: 20200501
  Receipt Date: 20240411
  Transmission Date: 20240717
  Serious: Yes (Life-Threatening, Hospitalization, Other)
  Sender: FDA-Public Use
  Company Number: CA-BAUSCH-BL-2020-012871

PATIENT
  Age: 65 Year
  Sex: Female

DRUGS (94)
  1. DILTIAZEM [Suspect]
     Active Substance: DILTIAZEM
     Indication: Product used for unknown indication
     Dosage: DILTIAZEM
     Route: 048
  2. DILTIAZEM [Suspect]
     Active Substance: DILTIAZEM
     Dosage: DILTIAZEM
     Route: 048
  3. DILTIAZEM [Suspect]
     Active Substance: DILTIAZEM
     Dosage: DILTIAZEM
     Route: 048
  4. DILTIAZEM [Suspect]
     Active Substance: DILTIAZEM
     Dosage: DILTIAZEM HYDROCHLORIDE
     Route: 065
  5. DILTIAZEM [Suspect]
     Active Substance: DILTIAZEM
     Dosage: DILTIAZEM HYDROCHLORIDE
     Route: 065
  6. DILTIAZEM [Suspect]
     Active Substance: DILTIAZEM
     Dosage: DILTIAZEM HYDROCHLORIDE
     Route: 048
  7. METFORMIN [Suspect]
     Active Substance: METFORMIN HYDROCHLORIDE
     Indication: Product used for unknown indication
     Route: 065
  8. METFORMIN [Suspect]
     Active Substance: METFORMIN HYDROCHLORIDE
     Route: 048
  9. METFORMIN [Suspect]
     Active Substance: METFORMIN HYDROCHLORIDE
     Dosage: METFORMIN HYDROCHLORIDE
     Route: 048
  10. METFORMIN [Suspect]
     Active Substance: METFORMIN HYDROCHLORIDE
     Dosage: METFORMIN HYDROCHLORIDE
     Route: 048
  11. METFORMIN [Suspect]
     Active Substance: METFORMIN HYDROCHLORIDE
     Dosage: METFORMIN HYDROCHLORIDE
     Route: 048
  12. METFORMIN [Suspect]
     Active Substance: METFORMIN HYDROCHLORIDE
     Dosage: METFORMIN HYDROCHLORIDE
     Route: 048
  13. GLUCOPHAGE [Suspect]
     Active Substance: METFORMIN HYDROCHLORIDE
     Indication: Product used for unknown indication
     Route: 065
  14. GLUCOPHAGE [Suspect]
     Active Substance: METFORMIN HYDROCHLORIDE
     Route: 065
  15. OMALIZUMAB [Suspect]
     Active Substance: OMALIZUMAB
     Indication: Asthma
     Route: 058
  16. OMALIZUMAB [Suspect]
     Active Substance: OMALIZUMAB
     Route: 058
  17. OMALIZUMAB [Suspect]
     Active Substance: OMALIZUMAB
     Dosage: NOT SPECIFIED
     Route: 058
  18. OMALIZUMAB [Suspect]
     Active Substance: OMALIZUMAB
     Route: 058
  19. OMALIZUMAB [Suspect]
     Active Substance: OMALIZUMAB
     Route: 058
  20. OMALIZUMAB [Suspect]
     Active Substance: OMALIZUMAB
     Route: 058
  21. OMALIZUMAB [Suspect]
     Active Substance: OMALIZUMAB
     Route: 058
  22. OMALIZUMAB [Suspect]
     Active Substance: OMALIZUMAB
     Route: 065
  23. OMALIZUMAB [Suspect]
     Active Substance: OMALIZUMAB
     Route: 048
  24. OMALIZUMAB [Suspect]
     Active Substance: OMALIZUMAB
     Route: 058
  25. OMALIZUMAB [Suspect]
     Active Substance: OMALIZUMAB
     Route: 048
  26. PREDNISONE [Suspect]
     Active Substance: PREDNISONE
     Indication: Asthma
     Dosage: NOT SPECIFIED
     Route: 048
  27. PREDNISONE [Suspect]
     Active Substance: PREDNISONE
     Dosage: NOT SPECIFIED
     Route: 048
  28. PREDNISONE [Suspect]
     Active Substance: PREDNISONE
     Dosage: NOT SPECIFIED
     Route: 065
  29. PREDNISONE [Suspect]
     Active Substance: PREDNISONE
     Dosage: NOT SPECIFIED
     Route: 065
  30. PREDNISONE [Suspect]
     Active Substance: PREDNISONE
     Dosage: NOT SPECIFIED
     Route: 048
  31. PREDNISONE [Suspect]
     Active Substance: PREDNISONE
     Dosage: NOT SPECIFIED
     Route: 048
  32. PREDNISONE [Suspect]
     Active Substance: PREDNISONE
     Route: 048
  33. PREDNISONE [Suspect]
     Active Substance: PREDNISONE
     Route: 065
  34. PREDNISONE [Suspect]
     Active Substance: PREDNISONE
     Route: 048
  35. RIVOTRIL [Suspect]
     Active Substance: CLONAZEPAM
     Indication: Product used for unknown indication
     Route: 048
  36. RIVOTRIL [Suspect]
     Active Substance: CLONAZEPAM
     Route: 048
  37. RIVOTRIL [Suspect]
     Active Substance: CLONAZEPAM
     Route: 065
  38. RIVOTRIL [Suspect]
     Active Substance: CLONAZEPAM
     Route: 065
  39. RIVOTRIL [Suspect]
     Active Substance: CLONAZEPAM
     Route: 048
  40. RIVOTRIL [Suspect]
     Active Substance: CLONAZEPAM
     Route: 048
  41. CLONAZEPAM [Suspect]
     Active Substance: CLONAZEPAM
     Indication: Product used for unknown indication
     Route: 048
  42. CLONAZEPAM [Suspect]
     Active Substance: CLONAZEPAM
     Route: 065
  43. CLONAZEPAM [Suspect]
     Active Substance: CLONAZEPAM
     Route: 065
  44. CLONAZEPAM [Suspect]
     Active Substance: CLONAZEPAM
     Route: 065
  45. ATORVASTATIN [Suspect]
     Active Substance: ATORVASTATIN
     Indication: Product used for unknown indication
     Dosage: ATORVASTATIN
     Route: 065
  46. ATORVASTATIN [Suspect]
     Active Substance: ATORVASTATIN
     Dosage: ATORVASTATIN CALCIUM
     Route: 065
  47. ATORVASTATIN [Suspect]
     Active Substance: ATORVASTATIN
     Dosage: ATORVASTATIN CALCIUM
     Route: 065
  48. ATORVASTATIN [Suspect]
     Active Substance: ATORVASTATIN
     Dosage: ATORVASTATIN CALCIUM
     Route: 065
  49. FOSAMAX [Suspect]
     Active Substance: ALENDRONATE SODIUM
     Indication: Product used for unknown indication
     Route: 048
  50. FOSAMAX [Suspect]
     Active Substance: ALENDRONATE SODIUM
     Route: 048
  51. FOSAMAX [Suspect]
     Active Substance: ALENDRONATE SODIUM
     Route: 065
  52. MOMETASONE FUROATE [Suspect]
     Active Substance: MOMETASONE FUROATE
     Indication: Product used for unknown indication
     Dosage: NOT SPECIFIED
     Route: 065
  53. XOLAIR [Suspect]
     Active Substance: OMALIZUMAB
     Indication: Asthma
     Dosage: NOT SPECIFIED
     Route: 058
  54. XOLAIR [Suspect]
     Active Substance: OMALIZUMAB
     Dosage: NOT SPECIFIED
     Route: 058
  55. XOLAIR [Suspect]
     Active Substance: OMALIZUMAB
     Dosage: NOT SPECIFIED
     Route: 058
  56. FUROSEMIDE [Suspect]
     Active Substance: FUROSEMIDE
     Indication: Product used for unknown indication
     Dosage: NOT SPECIFIED
     Route: 065
  57. IODINE [Suspect]
     Active Substance: IODINE
     Indication: Product used for unknown indication
     Dosage: NOT SPECIFIED
     Route: 065
  58. THEOPHYLLINE [Suspect]
     Active Substance: THEOPHYLLINE
     Indication: Product used for unknown indication
     Dosage: NOT SPECIFIED
     Route: 065
  59. ZINC [Suspect]
     Active Substance: PYRITHIONE ZINC\ZINC\ZINC CHLORIDE
     Indication: Product used for unknown indication
     Dosage: NOT SPECIFIED
     Route: 065
  60. ALENDRONATE SODIUM [Suspect]
     Active Substance: ALENDRONATE SODIUM
     Indication: Product used for unknown indication
     Route: 048
  61. ALENDRONATE SODIUM [Suspect]
     Active Substance: ALENDRONATE SODIUM
     Route: 048
  62. FORMOTEROL FUMARATE [Suspect]
     Active Substance: FORMOTEROL FUMARATE
     Indication: Asthma
     Dosage: INHALATION POWDER
     Route: 065
  63. FORMOTEROL FUMARATE [Suspect]
     Active Substance: FORMOTEROL FUMARATE
     Route: 055
  64. FORMOTEROL FUMARATE [Suspect]
     Active Substance: FORMOTEROL FUMARATE
     Route: 055
  65. ACLIDINIUM BROMIDE [Concomitant]
     Active Substance: ACLIDINIUM BROMIDE
     Indication: Asthma
     Route: 065
  66. ACLIDINIUM BROMIDE [Concomitant]
     Active Substance: ACLIDINIUM BROMIDE
     Route: 065
  67. ACLIDINIUM BROMIDE [Concomitant]
     Active Substance: ACLIDINIUM BROMIDE
     Route: 065
  68. ACLIDINIUM BROMIDE [Concomitant]
     Active Substance: ACLIDINIUM BROMIDE
     Route: 055
  69. ACLIDINIUM BROMIDE [Concomitant]
     Active Substance: ACLIDINIUM BROMIDE
     Route: 055
  70. ACLIDINIUM BROMIDE [Concomitant]
     Active Substance: ACLIDINIUM BROMIDE
     Route: 065
  71. ALENDRONATE SODIUM [Concomitant]
     Active Substance: ALENDRONATE SODIUM
     Indication: Product used for unknown indication
     Route: 048
  72. ALENDRONATE SODIUM [Concomitant]
     Active Substance: ALENDRONATE SODIUM
     Route: 048
  73. FORMOTEROL\MOMETASONE [Concomitant]
     Active Substance: FORMOTEROL\MOMETASONE
     Indication: Asthma
     Route: 065
  74. FORMOTEROL\MOMETASONE [Concomitant]
     Active Substance: FORMOTEROL\MOMETASONE
     Route: 065
  75. FORMOTEROL\MOMETASONE [Concomitant]
     Active Substance: FORMOTEROL\MOMETASONE
  76. LASIX [Concomitant]
     Active Substance: FUROSEMIDE
     Indication: Product used for unknown indication
     Dosage: NOT SPECIFIED
     Route: 048
  77. LASIX [Concomitant]
     Active Substance: FUROSEMIDE
     Dosage: NOT SPECIFIED
     Route: 065
  78. VENTOLIN [Concomitant]
     Active Substance: ALBUTEROL SULFATE
     Indication: Asthma
     Dosage: NOT SPECIFIED
     Route: 055
  79. VENTOLIN [Concomitant]
     Active Substance: ALBUTEROL SULFATE
     Route: 065
  80. VENTOLIN [Concomitant]
     Active Substance: ALBUTEROL SULFATE
     Dosage: NOT SPECIFIED
     Route: 055
  81. VENTOLIN [Concomitant]
     Active Substance: ALBUTEROL SULFATE
  82. VENTOLIN [Concomitant]
     Active Substance: ALBUTEROL SULFATE
     Dosage: NOT SPECIFIED
     Route: 055
  83. VENTOLIN [Concomitant]
     Active Substance: ALBUTEROL SULFATE
     Route: 065
  84. ALBUTEROL [Concomitant]
     Active Substance: ALBUTEROL
     Indication: Asthma
     Dosage: NOT SPECIFIED
     Route: 065
  85. ALBUTEROL [Concomitant]
     Active Substance: ALBUTEROL
     Dosage: SALBUTAMOL SULFATE
     Route: 065
  86. ZENHALE [Concomitant]
     Active Substance: FORMOTEROL FUMARATE\MOMETASONE FUROATE
     Indication: Asthma
     Dosage: AEROSOL, METERED DOSE
     Route: 065
  87. KEFLEX [Concomitant]
     Active Substance: CEPHALEXIN
     Indication: Product used for unknown indication
  88. TUDORZA PRESSAIR [Concomitant]
     Active Substance: ACLIDINIUM BROMIDE
     Indication: Asthma
     Route: 065
  89. ISOPHANE INSULIN [Concomitant]
     Active Substance: INSULIN NOS
     Indication: Product used for unknown indication
     Route: 065
  90. ISOPHANE INSULIN [Concomitant]
     Active Substance: INSULIN NOS
     Dosage: INSULIN ISOPHANE (NPH)
     Route: 065
  91. FORMOTEROL [Concomitant]
     Active Substance: FORMOTEROL
     Indication: Product used for unknown indication
     Dosage: FORMOTEROL FOR INHALATION
  92. PIPERACILLIN SODIUM\TAZOBACTAM SODIUM [Concomitant]
     Active Substance: PIPERACILLIN SODIUM\TAZOBACTAM SODIUM
     Indication: Product used for unknown indication
     Route: 065
  93. POTASSIUM [Concomitant]
     Active Substance: POTASSIUM
     Indication: Product used for unknown indication
     Route: 065
  94. CEPHALEXIN MONOHYDRATE [Concomitant]
     Active Substance: CEPHALEXIN MONOHYDRATE
     Indication: Product used for unknown indication
     Route: 065

REACTIONS (90)
  - Blood iron decreased [Not Recovered/Not Resolved]
  - Blood pressure increased [Not Recovered/Not Resolved]
  - Body temperature increased [Not Recovered/Not Resolved]
  - Bronchiectasis [Not Recovered/Not Resolved]
  - Peripheral swelling [Not Recovered/Not Resolved]
  - Drug dependence [Not Recovered/Not Resolved]
  - Myopathy [Not Recovered/Not Resolved]
  - Bronchitis [Not Recovered/Not Resolved]
  - Heart rate increased [Not Recovered/Not Resolved]
  - Haemoglobin decreased [Not Recovered/Not Resolved]
  - Cardiac failure [Not Recovered/Not Resolved]
  - Animal scratch [Not Recovered/Not Resolved]
  - Alveolar osteitis [Not Recovered/Not Resolved]
  - Back pain [Not Recovered/Not Resolved]
  - Balance disorder [Not Recovered/Not Resolved]
  - Blister [Not Recovered/Not Resolved]
  - Blood urine present [Not Recovered/Not Resolved]
  - Bronchopulmonary aspergillosis allergic [Not Recovered/Not Resolved]
  - Burning sensation [Not Recovered/Not Resolved]
  - Cellulitis [Not Recovered/Not Resolved]
  - Chills [Not Recovered/Not Resolved]
  - Cough [Not Recovered/Not Resolved]
  - Dyspnoea [Not Recovered/Not Resolved]
  - Dysuria [Not Recovered/Not Resolved]
  - Ear congestion [Not Recovered/Not Resolved]
  - Ear pain [Not Recovered/Not Resolved]
  - Fall [Not Recovered/Not Resolved]
  - Hypoacusis [Not Recovered/Not Resolved]
  - Hypokinesia [Not Recovered/Not Resolved]
  - Influenza [Not Recovered/Not Resolved]
  - Influenza like illness [Not Recovered/Not Resolved]
  - Injection site pain [Not Recovered/Not Resolved]
  - Joint injury [Not Recovered/Not Resolved]
  - Limb injury [Not Recovered/Not Resolved]
  - Movement disorder [Not Recovered/Not Resolved]
  - Muscle spasms [Not Recovered/Not Resolved]
  - Nasal polyps [Not Recovered/Not Resolved]
  - Nephrolithiasis [Not Recovered/Not Resolved]
  - Oropharyngeal pain [Not Recovered/Not Resolved]
  - Obstructive airways disorder [Not Recovered/Not Resolved]
  - Oedema [Not Recovered/Not Resolved]
  - Pain [Not Recovered/Not Resolved]
  - Pain in extremity [Not Recovered/Not Resolved]
  - Panic attack [Not Recovered/Not Resolved]
  - Paraesthesia [Not Recovered/Not Resolved]
  - Paranasal sinus discomfort [Not Recovered/Not Resolved]
  - Pollakiuria [Not Recovered/Not Resolved]
  - Pyrexia [Not Recovered/Not Resolved]
  - Sinus pain [Not Recovered/Not Resolved]
  - Sinusitis [Not Recovered/Not Resolved]
  - Tunnel vision [Not Recovered/Not Resolved]
  - Urinary tract infection [Not Recovered/Not Resolved]
  - Wound secretion [Not Recovered/Not Resolved]
  - Wound complication [Not Recovered/Not Resolved]
  - Myalgia [Not Recovered/Not Resolved]
  - Abdominal distension [Not Recovered/Not Resolved]
  - Migraine [Not Recovered/Not Resolved]
  - Hypoaesthesia oral [Not Recovered/Not Resolved]
  - Syncope [Not Recovered/Not Resolved]
  - Blood pressure systolic increased [Not Recovered/Not Resolved]
  - Abdominal pain [Not Recovered/Not Resolved]
  - Calculus urinary [Not Recovered/Not Resolved]
  - Depression [Not Recovered/Not Resolved]
  - Herpes zoster [Not Recovered/Not Resolved]
  - Illness [Not Recovered/Not Resolved]
  - Malaise [Not Recovered/Not Resolved]
  - Pseudomonas infection [Not Recovered/Not Resolved]
  - Pyelonephritis [Not Recovered/Not Resolved]
  - Seizure [Not Recovered/Not Resolved]
  - Sinus disorder [Not Recovered/Not Resolved]
  - Unevaluable event [Not Recovered/Not Resolved]
  - Urinary tract discomfort [Not Recovered/Not Resolved]
  - Wrist fracture [Not Recovered/Not Resolved]
  - Arthralgia [Not Recovered/Not Resolved]
  - Bladder pain [Not Recovered/Not Resolved]
  - Decreased appetite [Not Recovered/Not Resolved]
  - Dysarthria [Not Recovered/Not Resolved]
  - Haematuria [Not Recovered/Not Resolved]
  - Skin laceration [Not Recovered/Not Resolved]
  - Rales [Not Recovered/Not Resolved]
  - Pneumonia [Not Recovered/Not Resolved]
  - Diarrhoea [Not Recovered/Not Resolved]
  - Procedural pain [Not Recovered/Not Resolved]
  - Polymyalgia rheumatica [Not Recovered/Not Resolved]
  - Lower respiratory tract infection [Not Recovered/Not Resolved]
  - Feeling cold [Not Recovered/Not Resolved]
  - Gait disturbance [Not Recovered/Not Resolved]
  - Muscular weakness [Not Recovered/Not Resolved]
  - Incorrect dose administered [Not Recovered/Not Resolved]
  - Product dose omission issue [Not Recovered/Not Resolved]
